FAERS Safety Report 8318609-1 (Version None)
Quarter: 2012Q2

REPORT INFORMATION
  Report Type: 
  Country: None (occurrence: None)
  Receive Date: 20120427
  Receipt Date: 20090810
  Transmission Date: 20120825
  Serious: No
  Sender: FDA-Public Use
  Company Number: US-TEVA-2009009408

PATIENT
  Weight: 52.21 kg

DRUGS (4)
  1. NUVIGIL [Suspect]
     Indication: FIBROMYALGIA
     Dosage: 150 MILLIGRAM;
     Route: 048
     Dates: start: 20090701, end: 20090701
  2. AMRIX [Concomitant]
     Indication: MUSCLE SPASMS
     Dosage: 30 MILLIGRAM;
     Route: 048
     Dates: start: 20090701
  3. CYMBALTA [Concomitant]
     Indication: DEPRESSION
     Dosage: 120 MILLIGRAM;
     Dates: start: 20080801
  4. CYMBALTA [Concomitant]
     Indication: FIBROMYALGIA

REACTIONS (1)
  - DRUG INEFFECTIVE FOR UNAPPROVED INDICATION [None]
